FAERS Safety Report 7012696-9 (Version None)
Quarter: 2010Q3

REPORT INFORMATION
  Report Type: 
  Country: None (occurrence: None)
  Receive Date: 20100924
  Receipt Date: 20100916
  Transmission Date: 20110219
  Serious: Yes (Hospitalization)
  Sender: FDA-Public Use
  Company Number: DE-ROCHE-727758

PATIENT
  Age: 47 Year
  Sex: Male

DRUGS (5)
  1. INTERFERON ALFA-2A [Suspect]
     Indication: HEPATITIS C
     Dosage: DOSE: 6 MU 3 TIMES A WEEK.
     Route: 058
     Dates: start: 20000101, end: 20020401
  2. REMERGIL [Suspect]
     Indication: DEPRESSION
     Route: 048
     Dates: start: 20000501
  3. REMERGIL [Suspect]
     Route: 048
     Dates: end: 20020401
  4. REMERGIL [Suspect]
     Dosage: OVERDOSE
     Route: 048
     Dates: start: 20021101, end: 20021101
  5. REBETOL [Concomitant]
     Indication: HEPATITIS C
     Route: 048
     Dates: start: 20010201, end: 20020401

REACTIONS (4)
  - DEPRESSION [None]
  - INFLUENZA LIKE ILLNESS [None]
  - OVERDOSE [None]
  - SUICIDE ATTEMPT [None]
